FAERS Safety Report 6612599-5 (Version None)
Quarter: 2010Q1

REPORT INFORMATION
  Report Type: 
  Country: None (occurrence: None)
  Receive Date: 20100303
  Receipt Date: 20100219
  Transmission Date: 20100710
  Serious: Yes (Death, Life-Threatening)
  Sender: FDA-Public Use
  Company Number: FR-PFIZER INC-2010021898

PATIENT
  Age: 29 Year
  Sex: Female

DRUGS (3)
  1. ZOLOFT [Suspect]
     Indication: SUICIDE ATTEMPT
     Dosage: UNK
     Route: 048
  2. NOZINAN [Suspect]
     Indication: SUICIDE ATTEMPT
     Dosage: UNK
     Route: 048
  3. MEPRONIZINE [Suspect]
     Indication: SUICIDE ATTEMPT
     Dosage: UNK
     Route: 048

REACTIONS (3)
  - CARDIAC ARREST [None]
  - ENCEPHALOPATHY [None]
  - EPILEPSY [None]
